FAERS Safety Report 17514784 (Version 1)
Quarter: 2020Q1

REPORT INFORMATION
  Report Type: Report from Study
  Country: None (occurrence: GB)
  Receive Date: 20200309
  Receipt Date: 20200309
  Transmission Date: 20200409
  Serious: Yes (Other)
  Sender: FDA-Public Use
  Company Number: GB-ABBVIE-20K-167-3309753-00

PATIENT
  Sex: Female

DRUGS (1)
  1. HUMIRA [Suspect]
     Active Substance: ADALIMUMAB
     Indication: CROHN^S DISEASE
     Route: 058

REACTIONS (4)
  - Epilepsy [Not Recovered/Not Resolved]
  - Abscess [Not Recovered/Not Resolved]
  - Family stress [Not Recovered/Not Resolved]
  - Memory impairment [Not Recovered/Not Resolved]
